FAERS Safety Report 14385376 (Version 3)
Quarter: 2018Q4

REPORT INFORMATION
  Report Type: Spontaneous
  Country: US (occurrence: US)
  Receive Date: 20180115
  Receipt Date: 20181002
  Transmission Date: 20190204
  Serious: Yes (Other)
  Sender: FDA-Public Use
  Company Number: US-SA-2016SA229674

PATIENT
  Age: 55 Year
  Sex: Female
  Weight: 64.86 kg

DRUGS (10)
  1. DOXORUBICIN [Concomitant]
     Active Substance: DOXORUBICIN
     Dosage: UNK UNK,QCY
     Route: 065
     Dates: start: 20150116, end: 20150116
  2. DOXORUBICIN [Concomitant]
     Active Substance: DOXORUBICIN
     Dosage: UNK UNK,QCY
     Route: 065
     Dates: start: 20150323, end: 20150323
  3. IBUPROFEN. [Concomitant]
     Active Substance: IBUPROFEN
  4. TAXOTERE [Suspect]
     Active Substance: DOCETAXEL
     Indication: BREAST CANCER FEMALE
     Dosage: 100MG/M2 X 1.86 M2,Q3W
     Route: 042
     Dates: start: 20150413, end: 20150413
  5. TAXOTERE [Suspect]
     Active Substance: DOCETAXEL
     Dosage: 100MG/M2 X 1.86 M2,Q3W
     Route: 042
     Dates: start: 20150615, end: 20150615
  6. CYCLOPHOSPHAMIDE. [Concomitant]
     Active Substance: CYCLOPHOSPHAMIDE
     Dosage: UNK UNK,QCY
     Route: 065
     Dates: start: 20150116, end: 20150116
  7. ZOFRAN [ONDANSETRON] [Concomitant]
  8. CYCLOPHOSPHAMIDE. [Concomitant]
     Active Substance: CYCLOPHOSPHAMIDE
     Dosage: UNK UNK,QCY
     Route: 065
     Dates: start: 20150323, end: 20150323
  9. AMBIEN [Concomitant]
     Active Substance: ZOLPIDEM TARTRATE
  10. NEOSAR [Concomitant]
     Active Substance: CYCLOPHOSPHAMIDE

REACTIONS (4)
  - Anxiety [Unknown]
  - Emotional distress [Unknown]
  - Alopecia [Recovering/Resolving]
  - Psychological trauma [Unknown]

NARRATIVE: CASE EVENT DATE: 20151215
